FAERS Safety Report 7557094-4 (Version None)
Quarter: 2011Q2

REPORT INFORMATION
  Report Type: 
  Country: None (occurrence: None)
  Receive Date: 20110620
  Receipt Date: 20110615
  Transmission Date: 20111010
  Serious: Yes (Hospitalization)
  Sender: FDA-Public Use
  Company Number: DE-PFIZER INC-2011131069

PATIENT
  Age: 31 Year
  Sex: Male

DRUGS (2)
  1. LYRICA [Suspect]
     Indication: WITHDRAWAL SYNDROME
     Dosage: UNK
     Dates: end: 20101213
  2. LYRICA [Suspect]
     Indication: GRAND MAL CONVULSION

REACTIONS (2)
  - DRUG WITHDRAWAL SYNDROME [None]
  - DRUG DEPENDENCE [None]
